FAERS Safety Report 18980353 (Version 1)
Quarter: 2021Q1

REPORT INFORMATION
  Report Type: Report from Study
  Country: TH (occurrence: TH)
  Receive Date: 20210308
  Receipt Date: 20210308
  Transmission Date: 20210420
  Serious: Yes (Other)
  Sender: FDA-Public Use
  Company Number: NVSC2020TH255392

PATIENT
  Sex: Female

DRUGS (3)
  1. KISQALI [Suspect]
     Active Substance: RIBOCICLIB
     Dosage: 1 DF (1 TAB/TIMES)
     Route: 048
  2. KISQALI [Suspect]
     Active Substance: RIBOCICLIB
     Indication: BREAST CANCER METASTATIC
     Dosage: UNK (3 WEEKS THEN STOP 1 WEEK)
     Route: 048
     Dates: start: 20200826
  3. KISQALI [Suspect]
     Active Substance: RIBOCICLIB
     Dosage: 2 DF (2 TAB/TIMES)
     Route: 048

REACTIONS (3)
  - Immunosuppression [Unknown]
  - White blood cell count decreased [Unknown]
  - Thrombocytopenia [Unknown]
